FAERS Safety Report 9602754 (Version 1)
Quarter: 2013Q4

REPORT INFORMATION
  Report Type: Spontaneous
  Country: US (occurrence: US)
  Receive Date: 20131007
  Receipt Date: 20131007
  Transmission Date: 20140711
  Serious: Yes (Hospitalization)
  Sender: FDA-Public Use
  Company Number: US-GLAXOSMITHKLINE-A1044125A

PATIENT
  Age: 73 Year
  Sex: Female

DRUGS (7)
  1. SENSODYNE REPAIR PROTECT (STANNOUS FLUORIDE-US ONLY) [Suspect]
     Indication: DENTAL CARE
     Route: 065
     Dates: start: 201302
  2. UNKNOWN BLOOD PRESSURE MEDICATION [Suspect]
     Route: 065
  3. ONE A DAY MULTIVITAMIN [Concomitant]
  4. CALTRATE PLUS D [Concomitant]
  5. OSTEOBIFLEX [Concomitant]
  6. ANTI-CHOLESTEROL MEDICATION [Concomitant]
  7. GREEN TEA [Concomitant]

REACTIONS (10)
  - Anaphylactic shock [Unknown]
  - Tracheostomy [Unknown]
  - Swollen tongue [Recovered/Resolved]
  - Pharyngeal oedema [Recovered/Resolved]
  - Rash generalised [Recovered/Resolved]
  - Hypersensitivity [Recovered/Resolved]
  - Malaise [Unknown]
  - Oedema mouth [Unknown]
  - Dyspnoea [Unknown]
  - Rash [Unknown]
